FAERS Safety Report 6052260-1 (Version None)
Quarter: 2009Q1

REPORT INFORMATION
  Report Type: 
  Country: None (occurrence: None)
  Receive Date: 20090126
  Receipt Date: 20090116
  Transmission Date: 20090719
  Serious: Yes (Hospitalization, Other)
  Sender: FDA-Public Use
  Company Number: US-AMGEN-QUU328859

PATIENT
  Sex: Male

DRUGS (2)
  1. EPOGEN [Suspect]
     Indication: DIALYSIS
     Route: 042
     Dates: start: 20041101
  2. ARANESP [Suspect]
     Indication: DIALYSIS
     Route: 058
     Dates: end: 20081101

REACTIONS (5)
  - BLISTER [None]
  - BRADYCARDIA [None]
  - PNEUMONIA [None]
  - THERAPEUTIC RESPONSE DECREASED [None]
  - TYPE 2 DIABETES MELLITUS [None]
